FAERS Safety Report 6313608-3 (Version None)
Quarter: 2009Q3

REPORT INFORMATION
  Report Type: 
  Country: None (occurrence: None)
  Receive Date: 20090818
  Receipt Date: 20090810
  Transmission Date: 20100115
  Serious: Yes (Other)
  Sender: FDA-Public Use
  Company Number: JP-MERCK-0907USA04740

PATIENT
  Age: 66 Year
  Sex: Male
  Weight: 73 kg

DRUGS (4)
  1. HYZAAR [Suspect]
     Indication: HYPERTENSION
     Route: 048
     Dates: start: 20090224, end: 20090630
  2. OLMETEC [Concomitant]
     Route: 048
     Dates: start: 20050101, end: 20090210
  3. NORVASC [Concomitant]
     Route: 048
     Dates: start: 20050101
  4. AMARYL [Concomitant]
     Route: 048

REACTIONS (2)
  - MELANODERMIA [None]
  - PHOTODERMATOSIS [None]
